FAERS Safety Report 19007809 (Version 2)
Quarter: 2021Q2

REPORT INFORMATION
  Report Type: Spontaneous
  Country: DE (occurrence: DE)
  Receive Date: 20210315
  Receipt Date: 20210419
  Transmission Date: 20210717
  Serious: Yes (Other)
  Sender: FDA-Public Use
  Company Number: DE-TEVA-2021-DE-1889408

PATIENT
  Sex: Female

DRUGS (1)
  1. METROPROLOLSUCCINAT ? 1 A PHARMA, 47,5 MG [Suspect]
     Active Substance: METOPROLOL SUCCINATE
     Dosage: TAKEN FOR MANY YEARS
     Route: 048

REACTIONS (1)
  - Basal cell carcinoma [Not Recovered/Not Resolved]
